FAERS Safety Report 9401283 (Version 1)
Quarter: 2013Q3

REPORT INFORMATION
  Report Type: Report from Study
  Country: TW (occurrence: TW)
  Receive Date: 20130715
  Receipt Date: 20130715
  Transmission Date: 20140515
  Serious: Yes (Hospitalization)
  Sender: FDA-Public Use
  Company Number: PHHY2013TW011489

PATIENT
  Age: 47 Year
  Sex: Male
  Weight: 65 kg

DRUGS (12)
  1. AMN107 [Suspect]
     Indication: CHRONIC MYELOID LEUKAEMIA
     Dosage: 800 MG, DAILY
     Route: 048
     Dates: start: 20110422
  2. METFORMIN [Concomitant]
     Indication: DIABETES MELLITUS
     Dosage: UNK
  3. FUROSEMIDE [Concomitant]
     Indication: PROPHYLAXIS
     Dosage: UNK
     Dates: start: 20110311, end: 20110329
  4. FINSKA [Concomitant]
     Indication: RHINORRHOEA
     Dosage: UNK
     Dates: start: 20111014, end: 20111021
  5. FINSKA [Concomitant]
     Indication: UPPER RESPIRATORY TRACT INFECTION
     Dosage: UNK
     Dates: start: 20111223, end: 20120112
  6. FINSKA [Concomitant]
     Dosage: UNK
     Dates: start: 20120525, end: 20120606
  7. ACETAMINOPHEN [Concomitant]
     Indication: UPPER RESPIRATORY TRACT INFECTION
     Dosage: UNK
     Dates: start: 20120106, end: 20120113
  8. DEXTROMETHORPHAN [Concomitant]
     Indication: UPPER RESPIRATORY TRACT INFECTION
     Dosage: UNK
     Dates: start: 20111223, end: 20120106
  9. BROWN MIXTURE                      /01682301/ [Concomitant]
     Indication: UPPER RESPIRATORY TRACT INFECTION
     Dosage: UNK
     Dates: start: 20120106, end: 20120127
  10. GLIMEPIRIDE [Concomitant]
     Indication: DIABETES MELLITUS
     Dosage: UNK
     Dates: start: 20120928, end: 20121228
  11. SITAGLIPTIN [Concomitant]
     Indication: DIABETES MELLITUS
     Dosage: UNK
     Dates: start: 20120125
  12. ACARBOSE [Concomitant]
     Indication: DIABETES MELLITUS
     Dosage: UNK
     Dates: start: 20120907

REACTIONS (2)
  - Inguinal hernia, obstructive [Recovered/Resolved]
  - Pain [Unknown]
